FAERS Safety Report 19983061 (Version 1)
Quarter: 2021Q4

REPORT INFORMATION
  Report Type: Spontaneous
  Country: US (occurrence: US)
  Receive Date: 20211021
  Receipt Date: 20211021
  Transmission Date: 20220303
  Serious: Yes (Other)
  Sender: FDA-Public Use
  Company Number: US-SA-SAC20211018000999

PATIENT
  Sex: Female

DRUGS (1)
  1. THYROGEN [Suspect]
     Active Substance: THYROTROPIN ALFA
     Dosage: 0.9 MG/ML, QD (ONCE ON TWO CONSECUTIVE DAYS)
     Route: 030

REACTIONS (2)
  - Thyroid cancer [Unknown]
  - Headache [Unknown]
